FAERS Safety Report 13244348 (Version 1)
Quarter: 2017Q1

REPORT INFORMATION
  Report Type: Spontaneous
  Country: US (occurrence: US)
  Receive Date: 20170217
  Receipt Date: 20170217
  Transmission Date: 20170428
  Serious: No
  Sender: FDA-Public Use
  Company Number: None

PATIENT

DRUGS (2)
  1. ALBUTEROL ALBUTERO L [Suspect]
     Active Substance: ALBUTEROL SULFATE
     Dosage: SOLUTION
  2. ALBUTEROL 0.021% [Suspect]
     Active Substance: ALBUTEROL SULFATE
     Dosage: NEBULIZER SOLUTION

REACTIONS (3)
  - Restlessness [None]
  - Incorrect drug dosage form administered [None]
  - Drug dispensing error [None]
